FAERS Safety Report 5317303-9 (Version None)
Quarter: 2007Q2

REPORT INFORMATION
  Report Type: 
  Country: None (occurrence: None)
  Receive Date: 20070504
  Receipt Date: 20070424
  Transmission Date: 20071010
  Serious: Yes (Hospitalization, Other)
  Sender: FDA-Public Use
  Company Number: JP-PFIZER INC-2007033549

PATIENT
  Age: 61 Year
  Sex: Female

DRUGS (2)
  1. IDAMYCIN SOLUTION, STERILE [Suspect]
     Indication: ACUTE MYELOID LEUKAEMIA
     Dosage: DAILY DOSE:12MG/M*2
  2. ARA-C [Suspect]
     Indication: ACUTE MYELOID LEUKAEMIA
     Dosage: DAILY DOSE:100MG/M*2

REACTIONS (2)
  - SMALL INTESTINAL PERFORATION [None]
  - SMALL INTESTINE ULCER [None]
